FAERS Safety Report 6316617-3 (Version None)
Quarter: 2009Q3

REPORT INFORMATION
  Report Type: 
  Country: None (occurrence: None)
  Receive Date: 20090820
  Receipt Date: 20090811
  Transmission Date: 20100115
  Serious: Yes (Hospitalization, Other)
  Sender: FDA-Public Use
  Company Number: FR-TEVA-201639USA

PATIENT
  Sex: Female

DRUGS (6)
  1. BISELECT [Suspect]
     Indication: ISCHAEMIC CARDIOMYOPATHY
     Route: 048
     Dates: start: 20090310
  2. AMIODARONE HYDROCHLORIDE [Suspect]
     Indication: ARRHYTHMIA SUPRAVENTRICULAR
     Dosage: 1DOSAGE FORM DAILY 5 DAYS PER WEEK
     Route: 048
     Dates: start: 20081117, end: 20090527
  3. FLUINDIONE [Concomitant]
     Dosage: 1 DOSAGE FORM
  4. ATORVASTATIN CALCIUM [Concomitant]
     Route: 048
  5. MOLSIDOMINE [Concomitant]
     Route: 048
     Dates: start: 20090310
  6. BROMAZEPAM [Concomitant]
     Dosage: 0.5 DOSAGE FORM

REACTIONS (3)
  - CHEST X-RAY ABNORMAL [None]
  - PERICARDITIS [None]
  - PLEURAL EFFUSION [None]
